FAERS Safety Report 9921760 (Version 1)
Quarter: 2014Q1

REPORT INFORMATION
  Report Type: Spontaneous
  Country: US (occurrence: None)
  Receive Date: 20140221
  Receipt Date: 20140221
  Transmission Date: 20141002
  Serious: Yes (Death)
  Sender: FDA-Public Use
  Company Number: None

PATIENT
  Age: 45 Year
  Sex: Female
  Weight: 100 kg

DRUGS (1)
  1. CHANTIX PFIZER [Suspect]
     Indication: SMOKING CESSATION THERAPY
     Dosage: ONCE DAILY
     Route: 048
     Dates: start: 20131227, end: 20131230

REACTIONS (1)
  - Feeling abnormal [None]
